FAERS Safety Report 5753717-0 (Version None)
Quarter: 2008Q2

REPORT INFORMATION
  Report Type: 
  Country: None (occurrence: None)
  Receive Date: 20080530
  Receipt Date: 20080522
  Transmission Date: 20081010
  Serious: Yes (Other)
  Sender: FDA-Public Use
  Company Number: US-ABBOTT-08P-163-0453227-00

PATIENT
  Sex: Male
  Weight: 83.99 kg

DRUGS (8)
  1. NIASPAN [Suspect]
     Indication: BLOOD CHOLESTEROL INCREASED
     Route: 048
     Dates: start: 20060101, end: 20071101
  2. NIASPAN [Suspect]
     Route: 048
     Dates: start: 20040101, end: 20060101
  3. NIASPAN [Suspect]
     Route: 048
     Dates: start: 20080101, end: 20080201
  4. NIASPAN [Suspect]
     Route: 048
     Dates: start: 20080512
  5. ACETYLSALICYLIC ACID SRT [Concomitant]
     Indication: PREMEDICATION
     Route: 048
  6. ATENOLOL [Concomitant]
     Indication: HYPERTENSION
     Route: 048
  7. SIMVASTATIN [Concomitant]
     Indication: BLOOD CHOLESTEROL INCREASED
     Route: 048
  8. ALPRAZOLAM [Concomitant]
     Indication: HYPERTENSION
     Route: 048

REACTIONS (4)
  - CARTILAGE INJURY [None]
  - LOCALISED INFECTION [None]
  - PRURITUS [None]
  - RASH [None]
